FAERS Safety Report 23650366 (Version 1)
Quarter: 2024Q1

REPORT INFORMATION
  Report Type: Spontaneous
  Country: US (occurrence: None)
  Receive Date: 20240320
  Receipt Date: 20240320
  Transmission Date: 20240410
  Serious: No
  Sender: FDA-Public Use
  Company Number: US-ROCHE-3405773

PATIENT
  Age: 74 Year
  Sex: Female
  Weight: 47.67 kg

DRUGS (1)
  1. VABYSMO [Suspect]
     Active Substance: FARICIMAB\FARICIMAB-SVOA
     Indication: Neovascular age-related macular degeneration
     Route: 050
     Dates: start: 20230508

REACTIONS (4)
  - Intraocular pressure increased [Not Recovered/Not Resolved]
  - Lacrimation increased [Recovered/Resolved]
  - Eye discharge [Recovered/Resolved]
  - Off label use [Unknown]

NARRATIVE: CASE EVENT DATE: 20230508
